FAERS Safety Report 18693922 (Version 1)
Quarter: 2021Q1

REPORT INFORMATION
  Report Type: Report from Study
  Country: US (occurrence: US)
  Receive Date: 20210104
  Receipt Date: 20210104
  Transmission Date: 20210419
  Serious: Yes (Death)
  Sender: FDA-Public Use
  Company Number: US-PFIZER INC-2020520166

PATIENT
  Age: 77 Year
  Sex: Male

DRUGS (4)
  1. CEFEPIME HCL [Suspect]
     Active Substance: CEFEPIME HYDROCHLORIDE
     Indication: ACUTE RESPIRATORY FAILURE
     Dosage: UNK
  2. MEROPENEM. [Suspect]
     Active Substance: MEROPENEM
     Dosage: UNK
  3. VANCOMYCIN HCL [Suspect]
     Active Substance: VANCOMYCIN HYDROCHLORIDE
     Indication: ACUTE RESPIRATORY FAILURE
     Dosage: UNK
  4. CASPOFUNGIN [Suspect]
     Active Substance: CASPOFUNGIN
     Indication: BRONCHOPULMONARY ASPERGILLOSIS
     Dosage: UNK

REACTIONS (1)
  - Drug ineffective [Fatal]
